FAERS Safety Report 8170956-2 (Version None)
Quarter: 2012Q1

REPORT INFORMATION
  Report Type: 
  Country: None (occurrence: None)
  Receive Date: 20120113
  Receipt Date: 20111003
  Transmission Date: 20120608
  Serious: No
  Sender: FDA-Public Use
  Company Number: 2011S1000096

PATIENT

DRUGS (1)
  1. KRYSTEXXA [Suspect]
     Indication: GOUT
     Dosage: ;X1;

REACTIONS (6)
  - GOUT [None]
  - COLD SWEAT [None]
  - DRUG INEFFECTIVE [None]
  - FATIGUE [None]
  - PYREXIA [None]
  - CONDITION AGGRAVATED [None]
